FAERS Safety Report 6709511-7 (Version None)
Quarter: 2010Q2

REPORT INFORMATION
  Report Type: 
  Country: None (occurrence: None)
  Receive Date: 20100504
  Receipt Date: 20100427
  Transmission Date: 20101027
  Serious: Yes (Other)
  Sender: FDA-Public Use
  Company Number: JP-PFIZER INC-2010048066

PATIENT
  Age: 15 Year
  Sex: Male

DRUGS (2)
  1. ZYVOX [Suspect]
     Indication: WOUND INFECTION STAPHYLOCOCCAL
     Dosage: 600 MG/DAY
     Route: 042
     Dates: start: 20100130, end: 20100413
  2. MAXIPIME [Suspect]
     Indication: BACTERIAL INFECTION
     Dosage: 3 G/DAY
     Route: 042
     Dates: start: 20100407, end: 20100413

REACTIONS (1)
  - DEPRESSED LEVEL OF CONSCIOUSNESS [None]
